FAERS Safety Report 7420973-2 (Version None)
Quarter: 2011Q2

REPORT INFORMATION
  Report Type: 
  Country: None (occurrence: None)
  Receive Date: 20110418
  Receipt Date: 20110408
  Transmission Date: 20111010
  Serious: Yes (Disabling, Other)
  Sender: FDA-Public Use
  Company Number: PHHY2011JP19863

PATIENT
  Age: 51 Year
  Sex: Male

DRUGS (13)
  1. PREDNISONE [Concomitant]
  2. RITUXAN [Concomitant]
  3. CHASER [Concomitant]
  4. MITOXANTRONE [Concomitant]
  5. MYCOPHENOLATE MOFETIL [Concomitant]
     Indication: PROPHYLAXIS AGAINST GRAFT VERSUS HOST DISEASE
  6. RITUXIMAB [Concomitant]
  7. FLUDARABINE [Concomitant]
  8. IRRADIATION [Concomitant]
  9. VINCRISTINE [Concomitant]
  10. M RUNIMUSTINE C CARBOPLATIN [Concomitant]
  11. CYCLOPHOSPHAMIDE [Concomitant]
  12. DOXORUBICIN [Concomitant]
  13. SANDIMMUNE [Suspect]
     Route: 041

REACTIONS (5)
  - GRAFT VERSUS HOST DISEASE [None]
  - CARDIOMYOPATHY [None]
  - CARDIAC FAILURE CONGESTIVE [None]
  - FLUID RETENTION [None]
  - BRAIN NATRIURETIC PEPTIDE INCREASED [None]
